FAERS Safety Report 12968310 (Version 1)
Quarter: 2016Q4

REPORT INFORMATION
  Report Type: Spontaneous
  Country: US (occurrence: US)
  Receive Date: 20161119
  Receipt Date: 20161119
  Transmission Date: 20170207
  Serious: No
  Sender: FDA-Public Use
  Company Number: None

PATIENT
  Age: 61 Year
  Sex: Male

DRUGS (1)
  1. LUCENTIS [Suspect]
     Active Substance: RANIBIZUMAB
     Indication: RETINAL NEOVASCULARISATION
     Dosage: 0.5MG EVERY 28 DAYS INTRAVITREAL INJECTION
     Dates: start: 20140101

REACTIONS (2)
  - Vision blurred [None]
  - Eye prosthesis user [None]

NARRATIVE: CASE EVENT DATE: 20150101
